FAERS Safety Report 19281674 (Version 1)
Quarter: 2021Q2

REPORT INFORMATION
  Report Type: Spontaneous
  Country: CA (occurrence: CA)
  Receive Date: 20210520
  Receipt Date: 20210520
  Transmission Date: 20210717
  Serious: Yes (Death)
  Sender: FDA-Public Use
  Company Number: CA-AMNEAL PHARMACEUTICALS-2021-AMRX-01795

PATIENT
  Age: 0 Year
  Sex: Female

DRUGS (5)
  1. NADOLOL. [Suspect]
     Active Substance: NADOLOL
     Dosage: 5 MILLIGRAM, BID
     Route: 065
     Dates: start: 20151102, end: 20151122
  2. NADOLOL. [Suspect]
     Active Substance: NADOLOL
     Indication: INFANTILE HAEMANGIOMA
     Dosage: 1.3 MILLIGRAM, BID
     Route: 065
     Dates: start: 20151021, end: 20151024
  3. NADOLOL. [Suspect]
     Active Substance: NADOLOL
     Dosage: 2.6 MILLIGRAM, BID
     Route: 065
     Dates: start: 20151025, end: 20151028
  4. NADOLOL. [Suspect]
     Active Substance: NADOLOL
     Dosage: 5.5 MILLIGRAM, BID
     Route: 065
     Dates: start: 20151123, end: 201512
  5. NADOLOL. [Suspect]
     Active Substance: NADOLOL
     Dosage: 3.9 MILLIGRAM, BID
     Route: 065
     Dates: start: 20151029, end: 20151101

REACTIONS (3)
  - Unresponsive to stimuli [Fatal]
  - Toxicity to various agents [Fatal]
  - Cardiac failure [Fatal]

NARRATIVE: CASE EVENT DATE: 2015
